FAERS Safety Report 15213745 (Version 2)
Quarter: 2018Q3

REPORT INFORMATION
  Report Type: Spontaneous
  Country: US (occurrence: US)
  Receive Date: 20180730
  Receipt Date: 20180924
  Transmission Date: 20181010
  Serious: Yes (Other)
  Sender: FDA-Public Use
  Company Number: US-SA-2017SA256179

PATIENT
  Age: 58 Year
  Sex: Female
  Weight: 62 kg

DRUGS (16)
  1. COZAAR [Concomitant]
     Active Substance: LOSARTAN POTASSIUM
  2. SYNTHROID [Concomitant]
     Active Substance: LEVOTHYROXINE SODIUM
  3. CELEBREX [Concomitant]
     Active Substance: CELECOXIB
  4. LETROZOLE. [Concomitant]
     Active Substance: LETROZOLE
  5. ADRIAMYCIN [Concomitant]
     Active Substance: DOXORUBICIN HYDROCHLORIDE
     Dosage: UNK UNK, UNK
  6. DECADRON [DEXAMETHASONE] [Concomitant]
     Indication: ALOPECIA
     Dosage: UNK UNK, UNK
  7. ZOFRAN [ONDANSETRON HYDROCHLORIDE] [Concomitant]
     Indication: ALOPECIA
     Dosage: UNK UNK, UNK
  8. SINGULAIR [Concomitant]
     Active Substance: MONTELUKAST SODIUM
  9. TOPROL XL [Concomitant]
     Active Substance: METOPROLOL SUCCINATE
  10. NEULASTA [Concomitant]
     Active Substance: PEGFILGRASTIM
     Indication: ALOPECIA
  11. ARIMIDEX [Concomitant]
     Active Substance: ANASTROZOLE
  12. TAXOTERE [Suspect]
     Active Substance: DOCETAXEL
     Dosage: 120 MG, Q3W
     Route: 042
     Dates: start: 20130111, end: 20130111
  13. ALDACTONE [Concomitant]
     Active Substance: SPIRONOLACTONE
  14. TAXOTERE [Suspect]
     Active Substance: DOCETAXEL
     Indication: BREAST CANCER FEMALE
     Dosage: 125 MG, Q3W
     Route: 042
     Dates: start: 20120921, end: 20120921
  15. LYRICA [Concomitant]
     Active Substance: PREGABALIN
  16. NEOSAR [Concomitant]
     Active Substance: CYCLOPHOSPHAMIDE
     Dosage: UNK UNK, UNK

REACTIONS (2)
  - Alopecia [Recovering/Resolving]
  - Psychological trauma [Unknown]

NARRATIVE: CASE EVENT DATE: 201307
